FAERS Safety Report 14321171 (Version 4)
Quarter: 2018Q2

REPORT INFORMATION
  Report Type: Spontaneous
  Country: GB (occurrence: GB)
  Receive Date: 20171223
  Receipt Date: 20180404
  Transmission Date: 20180711
  Serious: Yes (Other)
  Sender: FDA-Public Use
  Company Number: GB-AUROBINDO-AUR-APL-2017-46892

PATIENT

DRUGS (1)
  1. PRAMIPEXOLE TABLET [Suspect]
     Active Substance: PRAMIPEXOLE
     Indication: RESTLESS LEGS SYNDROME
     Dosage: 3 DF, QD (4-5 YEARS)
     Route: 065

REACTIONS (7)
  - Self-injurious ideation [Unknown]
  - Compulsions [Unknown]
  - Product use in unapproved indication [Unknown]
  - Crying [Unknown]
  - Depression [Unknown]
  - Suicidal ideation [Unknown]
  - Gambling disorder [Unknown]
